FAERS Safety Report 6867099-4 (Version None)
Quarter: 2010Q3

REPORT INFORMATION
  Report Type: 
  Country: None (occurrence: None)
  Receive Date: 20100722
  Receipt Date: 20100716
  Transmission Date: 20110219
  Serious: Yes (Life-Threatening, Hospitalization, Other)
  Sender: FDA-Public Use
  Company Number: A0862271A

PATIENT
  Age: 42 Year
  Sex: Male
  Weight: 107.7 kg

DRUGS (9)
  1. EPZICOM [Suspect]
     Indication: HIV INFECTION
     Route: 065
     Dates: start: 20060101
  2. ISENTRESS [Concomitant]
     Dosage: 400U TWICE PER DAY
  3. INTELENCE [Concomitant]
     Dosage: 200U TWICE PER DAY
  4. NORVIR [Concomitant]
     Dosage: 100U TWICE PER DAY
  5. PREZISTA [Concomitant]
     Dosage: 600U TWICE PER DAY
  6. UNKNOWN [Concomitant]
     Dosage: 25MG THREE TIMES PER DAY
  7. PERCOCET [Concomitant]
  8. TESTIM [Concomitant]
     Dosage: 5G PER DAY
  9. AMBIEN CR [Concomitant]

REACTIONS (2)
  - CORONARY ARTERY BYPASS [None]
  - MYOCARDIAL INFARCTION [None]
